FAERS Safety Report 17737045 (Version 4)
Quarter: 2020Q3

REPORT INFORMATION
  Report Type: Spontaneous
  Country: US (occurrence: US)
  Receive Date: 20200502
  Receipt Date: 20200717
  Transmission Date: 20201102
  Serious: Yes (Other)
  Sender: FDA-Public Use
  Company Number: US-BION-008672

PATIENT
  Sex: Female
  Weight: 52 kg

DRUGS (1)
  1. ALEVE [Suspect]
     Active Substance: NAPROXEN SODIUM
     Indication: SCIATICA
     Dosage: 1 TABLET EVERY 12 HOUR
     Route: 048

REACTIONS (8)
  - Weight decreased [Unknown]
  - Incorrect product administration duration [Not Recovered/Not Resolved]
  - Decreased appetite [Unknown]
  - Autoimmune disorder [Unknown]
  - Basedow^s disease [Unknown]
  - Gastritis [Unknown]
  - Urticaria [Unknown]
  - Product use in unapproved indication [Not Recovered/Not Resolved]

NARRATIVE: CASE EVENT DATE: 202001
